FAERS Safety Report 9888617 (Version 2)
Quarter: 2014Q1

REPORT INFORMATION
  Report Type: Spontaneous
  Country: US (occurrence: US)
  Receive Date: 20140211
  Receipt Date: 20140221
  Transmission Date: 20141002
  Serious: Yes (Life-Threatening, Hospitalization, Other)
  Sender: FDA-Public Use
  Company Number: US-SA-2014SA015781

PATIENT
  Age: 45 Year
  Sex: Male
  Weight: 78.4 kg

DRUGS (3)
  1. HECTOROL [Suspect]
     Indication: HYPERPARATHYROIDISM SECONDARY
     Route: 042
     Dates: start: 20140129, end: 20140129
  2. EPOGEN [Concomitant]
     Dosage: DOSE:10000 UNIT(S)
     Route: 042
     Dates: start: 20140129
  3. VENOFER [Concomitant]
     Route: 042
     Dates: start: 20140129

REACTIONS (5)
  - Cardiac arrest [Unknown]
  - Pulse absent [Recovered/Resolved]
  - Unresponsive to stimuli [Not Recovered/Not Resolved]
  - Apnoea [Unknown]
  - Convulsion [Unknown]
